FAERS Safety Report 21631562 (Version 1)
Quarter: 2022Q4

REPORT INFORMATION
  Report Type: Spontaneous
  Country: ES (occurrence: ES)
  Receive Date: 20221123
  Receipt Date: 20221123
  Transmission Date: 20230113
  Serious: Yes (Life-Threatening)
  Sender: FDA-Public Use
  Company Number: ES-SUN PHARMACEUTICAL INDUSTRIES LTD-2022RR-365282

PATIENT
  Age: 38 Year
  Sex: Male
  Weight: 61 kg

DRUGS (21)
  1. OMEPRAZOLE [Suspect]
     Active Substance: OMEPRAZOLE
     Indication: Product used for unknown indication
     Dosage: 20 MILLIGRAM, 1X / DAY
     Route: 065
     Dates: start: 20010321
  2. PIPERACILLIN SODIUM\TAZOBACTAM SODIUM [Suspect]
     Active Substance: PIPERACILLIN SODIUM\TAZOBACTAM SODIUM
     Indication: Product used for unknown indication
     Dosage: 2
     Route: 065
  3. PIPERACILLIN SODIUM\TAZOBACTAM SODIUM [Suspect]
     Active Substance: PIPERACILLIN SODIUM\TAZOBACTAM SODIUM
     Dosage: 1 3
     Route: 065
  4. PIPERACILLIN SODIUM\TAZOBACTAM SODIUM [Suspect]
     Active Substance: PIPERACILLIN SODIUM\TAZOBACTAM SODIUM
     Dosage: 1 DOSAGE FORM, 3X / DAY
     Route: 065
  5. PIPERACILLIN SODIUM\TAZOBACTAM SODIUM [Suspect]
     Active Substance: PIPERACILLIN SODIUM\TAZOBACTAM SODIUM
     Dosage: UNK, 3X / DAY
     Route: 065
     Dates: start: 20010321, end: 20010325
  6. PIPERACILLIN SODIUM\TAZOBACTAM SODIUM [Suspect]
     Active Substance: PIPERACILLIN SODIUM\TAZOBACTAM SODIUM
     Dosage: 40 MG, Q12H; IV NOS 9 DF, QD; IV BOLUS 3 DF, QD; IV BOLUS
     Route: 040
  7. PIPERACILLIN SODIUM\TAZOBACTAM SODIUM [Suspect]
     Active Substance: PIPERACILLIN SODIUM\TAZOBACTAM SODIUM
     Dosage: UNK, 1X / DAY
     Route: 065
     Dates: start: 20090329
  8. PIPERACILLIN SODIUM\TAZOBACTAM SODIUM [Suspect]
     Active Substance: PIPERACILLIN SODIUM\TAZOBACTAM SODIUM
     Indication: Product used for unknown indication
     Dosage: 3 DOSAGE FORM, 1X / DAY, 4/0.5 G
     Route: 042
     Dates: start: 20010321, end: 20010329
  9. SODIUM [Suspect]
     Active Substance: SODIUM
     Indication: Product used for unknown indication
     Dosage: 1 DOSAGE FORM, 3X / DAY
     Route: 065
  10. SODIUM [Suspect]
     Active Substance: SODIUM
     Dosage: 40 MG, Q12H; IV NOS 9 DF, QD; IV BOLUS 3 DF, QD; IV BOLUS
     Route: 040
  11. SODIUM [Suspect]
     Active Substance: SODIUM
     Dosage: UNK, 3X / DAY
     Route: 065
     Dates: start: 20010321, end: 20010325
  12. SODIUM [Suspect]
     Active Substance: SODIUM
     Dosage: UNK 1 3 ) PIPERACILLIN SODIUM/TAZOBACTAM
     Route: 065
  13. SODIUM [Suspect]
     Active Substance: SODIUM
     Dosage: UNK, 1X / DAY
     Route: 065
     Dates: end: 20090329
  14. SODIUM [Suspect]
     Active Substance: SODIUM
     Dosage: 2
     Route: 065
  15. SODIUM [Suspect]
     Active Substance: SODIUM
     Dosage: UNK
     Route: 065
  16. PIPERACILLIN SODIUM\TAZOBACTAM SODIUM [Suspect]
     Active Substance: PIPERACILLIN SODIUM\TAZOBACTAM SODIUM
     Indication: Product used for unknown indication
     Dosage: 9 DOSAGE FORM, 4/0,5 G
     Route: 042
     Dates: start: 20010321, end: 20010329
  17. METAMIZOLE SODIUM [Suspect]
     Active Substance: METAMIZOLE SODIUM
     Indication: Product used for unknown indication
     Dosage: 3 GRAM, 1X / DAY, IV NOS 0.33 G, Q8H; IV NOS
     Route: 040
     Dates: start: 20010325, end: 20010328
  18. METAMIZOLE SODIUM [Suspect]
     Active Substance: METAMIZOLE SODIUM
     Dosage: UNK, 1X / DAY
     Route: 065
  19. METAMIZOLE SODIUM [Suspect]
     Active Substance: METAMIZOLE SODIUM
     Dosage: 0.4 GRAM PER MILLILITRE
     Route: 065
  20. METHYLPREDNISOLONE SODIUM SUCCINATE [Suspect]
     Active Substance: METHYLPREDNISOLONE SODIUM SUCCINATE
     Indication: Product used for unknown indication
     Dosage: 160 MILLIGRAM, 1X / DAY
     Route: 050
     Dates: start: 20010321, end: 20010325
  21. KETOROLAC TROMETHAMINE [Suspect]
     Active Substance: KETOROLAC TROMETHAMINE
     Indication: Product used for unknown indication
     Dosage: 30 MILLIGRAM, DAILY
     Route: 042
     Dates: start: 20010321, end: 20010325

REACTIONS (1)
  - Agranulocytosis [Recovered/Resolved]

NARRATIVE: CASE EVENT DATE: 20010327
